FAERS Safety Report 8927819 (Version 1)
Quarter: 2012Q4

REPORT INFORMATION
  Report Type: Report from Study
  Country: JP (occurrence: JP)
  Receive Date: 20121127
  Receipt Date: 20121127
  Transmission Date: 20130627
  Serious: Yes (Other)
  Sender: FDA-Public Use
  Company Number: JP-VERTEX PHARMACEUTICAL INC.-AE-2012-010865

PATIENT
  Age: 66 Year
  Sex: Female

DRUGS (9)
  1. VX-950 (TELAPREVIR) [Suspect]
     Indication: HEPATITIS C
     Dosage: 1500 mg, qd
     Route: 048
     Dates: start: 20120124, end: 20120206
  2. VX-950 (TELAPREVIR) [Suspect]
     Dosage: 1000 UNK, UNK
     Route: 048
     Dates: start: 20120207, end: 20120418
  3. RIBAVIRIN [Suspect]
     Indication: CHRONIC HEPATITIS C
     Dosage: 400 mg, qd
     Route: 048
     Dates: start: 20120124, end: 20120709
  4. PEGINTERFERON ALFA-2B [Suspect]
     Indication: CHRONIC HEPATITIS C
     Dosage: 1.0 ?g/kg, qw
     Route: 058
     Dates: start: 20120124, end: 20120327
  5. PEGINTERFERON ALFA-2B [Suspect]
     Dosage: 0.8 ?g/kg, qw
     Route: 058
     Dates: start: 20120328, end: 20120703
  6. MAGLAX [Concomitant]
     Dosage: 7.5 g, qd
     Route: 048
  7. CALONAL [Concomitant]
     Dosage: 400 mg, prn
     Route: 048
     Dates: start: 20120124, end: 20120709
  8. ZYLORIC [Concomitant]
     Dosage: 100 mg, qd
     Route: 048
     Dates: start: 20120207, end: 20120501
  9. TSUMURA DAIKENCHUTO EXTRACT GRANULES FOR ETHICAL USE [Concomitant]
     Dosage: 7.5 g, qd
     Route: 048
     Dates: end: 20120322

REACTIONS (1)
  - Melaena [Recovered/Resolved]
